FAERS Safety Report 21021666 (Version 4)
Quarter: 2022Q4

REPORT INFORMATION
  Report Type: Report from Study
  Country: NL (occurrence: NL)
  Receive Date: 20220629
  Receipt Date: 20221014
  Transmission Date: 20230113
  Serious: Yes (Hospitalization, Other)
  Sender: FDA-Public Use
  Company Number: NL-BEH-2022146611

PATIENT
  Age: 31 Year
  Sex: Male
  Weight: 69 kg

DRUGS (18)
  1. PRIVIGEN [Suspect]
     Active Substance: HUMAN IMMUNOGLOBULIN G
     Indication: Secondary immunodeficiency
     Dosage: 35 GRAM, Q3W
     Route: 042
     Dates: start: 20200402
  2. PRIVIGEN [Suspect]
     Active Substance: HUMAN IMMUNOGLOBULIN G
     Dosage: 1 DOSAGE FORM, Q3W
     Route: 042
     Dates: start: 20220517
  3. PRIVIGEN [Suspect]
     Active Substance: HUMAN IMMUNOGLOBULIN G
     Dosage: UNK
     Route: 042
     Dates: start: 20220517
  4. PRIVIGEN [Suspect]
     Active Substance: HUMAN IMMUNOGLOBULIN G
     Dosage: UNK
     Route: 042
     Dates: start: 20220517
  5. PRIVIGEN [Suspect]
     Active Substance: HUMAN IMMUNOGLOBULIN G
     Dosage: UNK
     Route: 042
     Dates: start: 20200402
  6. PRIVIGEN [Suspect]
     Active Substance: HUMAN IMMUNOGLOBULIN G
     Dosage: UNK
     Route: 042
     Dates: start: 20200402
  7. PRIVIGEN [Suspect]
     Active Substance: HUMAN IMMUNOGLOBULIN G
     Dosage: UNK
     Route: 042
     Dates: start: 20200402
  8. PRIVIGEN [Suspect]
     Active Substance: HUMAN IMMUNOGLOBULIN G
     Dosage: UNK
     Route: 042
  9. PRIVIGEN [Suspect]
     Active Substance: HUMAN IMMUNOGLOBULIN G
     Dosage: UNK
     Route: 042
  10. PRIVIGEN [Suspect]
     Active Substance: HUMAN IMMUNOGLOBULIN G
     Dosage: UNK
     Route: 042
  11. FOLIC ACID [Concomitant]
     Active Substance: FOLIC ACID
  12. PREDNISONE [Concomitant]
     Active Substance: PREDNISONE
  13. CELLCEPT [Concomitant]
     Active Substance: MYCOPHENOLATE MOFETIL
  14. PERINDOPRIL [Concomitant]
     Active Substance: PERINDOPRIL
  15. CALCI CHEW [Concomitant]
  16. SIMVASTATIN [Concomitant]
     Active Substance: SIMVASTATIN
  17. SEVELAMEERCARBONAAT AUROBINDO [Concomitant]
  18. EPO [ERYTHROPOIETIN] [Concomitant]

REACTIONS (6)
  - General physical health deterioration [Not Recovered/Not Resolved]
  - Focal segmental glomerulosclerosis [Not Recovered/Not Resolved]
  - Weight decreased [Not Recovered/Not Resolved]
  - Renal function test abnormal [Not Recovered/Not Resolved]
  - Drug ineffective [Unknown]
  - Hepatitis [Unknown]

NARRATIVE: CASE EVENT DATE: 20220614
